FAERS Safety Report 20305495 (Version 1)
Quarter: 2022Q1

REPORT INFORMATION
  Report Type: Spontaneous
  Country: US (occurrence: US)
  Receive Date: 20220106
  Receipt Date: 20220106
  Transmission Date: 20220424
  Serious: No
  Sender: FDA-Public Use
  Company Number: US-AMNEAL PHARMACEUTICALS-2020-AMRX-03999

PATIENT
  Age: 44 Year
  Sex: Female
  Weight: 129.3 kg

DRUGS (11)
  1. ACTIVELLA [Suspect]
     Active Substance: ESTRADIOL\NORETHINDRONE ACETATE
     Indication: Uterine leiomyoma
     Dosage: 1 DOSAGE FORM, DAILY
     Route: 048
     Dates: start: 20190610, end: 20200520
  2. ACTIVELLA [Suspect]
     Active Substance: ESTRADIOL\NORETHINDRONE ACETATE
     Dosage: 1 DOSAGE FORM, DAILY
     Route: 048
     Dates: start: 20200520, end: 20201116
  3. ELAGOLIX [Suspect]
     Active Substance: ELAGOLIX
     Indication: Uterine leiomyoma
     Dosage: 1 CAPSULES, DAILY
     Route: 048
     Dates: start: 20190610, end: 20200520
  4. ELAGOLIX [Suspect]
     Active Substance: ELAGOLIX
     Dosage: 1 CAPSULES, DAILY PM DOSE
     Route: 048
     Dates: start: 20190610, end: 20200520
  5. ELAGOLIX [Suspect]
     Active Substance: ELAGOLIX
     Dosage: 1 CAPSULES, DAILY
     Route: 048
     Dates: start: 20200520, end: 20201116
  6. ELAGOLIX [Suspect]
     Active Substance: ELAGOLIX
     Dosage: 1 CAPSULES, DAILY PM DOSE
     Route: 048
     Dates: start: 20200520, end: 20201116
  7. VITAMINS [Concomitant]
     Active Substance: VITAMINS
     Indication: Supplementation therapy
     Dosage: 1 TABLETS, DAILY
     Route: 065
     Dates: start: 2014
  8. PAPAYA [Concomitant]
     Active Substance: PAPAYA
     Indication: Supplementation therapy
     Dosage: 6 TABLETS, DAILY
     Route: 048
     Dates: start: 2019
  9. VITAMIN B6 [Concomitant]
     Active Substance: PYRIDOXINE HYDROCHLORIDE
     Indication: Supplementation therapy
     Dosage: 100 MILLIGRAM, DAILY
     Route: 048
     Dates: start: 2019
  10. FERROUS SULFATE [Concomitant]
     Active Substance: FERROUS SULFATE
     Indication: Anaemia
     Dosage: 325 MILLIGRAM, DAILY
     Route: 048
     Dates: start: 20190322
  11. ERGOCALCIFEROL [Concomitant]
     Active Substance: ERGOCALCIFEROL
     Indication: Vitamin D deficiency
     Dosage: 1000 INTERNATIONAL UNIT, DAILY
     Route: 048
     Dates: start: 20190325

REACTIONS (1)
  - Bone density decreased [Not Recovered/Not Resolved]

NARRATIVE: CASE EVENT DATE: 20201116
